FAERS Safety Report 9829935 (Version 1)
Quarter: 2014Q1

REPORT INFORMATION
  Report Type: Spontaneous
  Country: US (occurrence: US)
  Receive Date: 20140120
  Receipt Date: 20140120
  Transmission Date: 20141002
  Serious: No
  Sender: FDA-Public Use
  Company Number: US-009507513-1401USA005270

PATIENT
  Age: 68 Year
  Sex: Female

DRUGS (3)
  1. NASONEX [Suspect]
     Indication: PARANASAL SINUS HYPERSECRETION
     Dosage: 2 SPRAYS IN EACH NOSTRIL, TWICE A DAY
     Route: 045
     Dates: start: 20131224
  2. SYNTHROID [Concomitant]
  3. OMEPRAZOLE [Concomitant]

REACTIONS (3)
  - Paranasal sinus hypersecretion [Not Recovered/Not Resolved]
  - Drug dose omission [Unknown]
  - Product quality issue [Unknown]
